FAERS Safety Report 25086699 (Version 2)
Quarter: 2025Q2

REPORT INFORMATION
  Report Type: Spontaneous
  Country: US (occurrence: US)
  Receive Date: 20250318
  Receipt Date: 20250417
  Transmission Date: 20250717
  Serious: Yes (Death, Hospitalization, Other)
  Sender: BRISTOL MYERS SQUIBB
  Company Number: US-BRISTOL-MYERS SQUIBB COMPANY-2025-039471

PATIENT
  Age: 92 Year
  Sex: Male

DRUGS (7)
  1. ELIQUIS [Suspect]
     Active Substance: APIXABAN
     Indication: Atrial fibrillation
     Route: 048
  2. LIPITOR [Concomitant]
     Active Substance: ATORVASTATIN CALCIUM
     Indication: Product used for unknown indication
     Dosage: EVERY EVENING
     Route: 048
  3. CYMBALTA [Concomitant]
     Active Substance: DULOXETINE HYDROCHLORIDE
     Indication: Product used for unknown indication
     Dosage: CAPSULES DR PARTICLES BY MOUTH EVERYDAY
     Route: 048
  4. SYNTHROID [Concomitant]
     Active Substance: LEVOTHYROXINE SODIUM
     Indication: Product used for unknown indication
     Dosage: TABLET BY MOUTH EVERY MORNING ON AN EMPTY STOMACH VIA ORAL ROUTE
     Route: 048
  5. TOPROL XL [Concomitant]
     Active Substance: METOPROLOL SUCCINATE
     Indication: Product used for unknown indication
     Dosage: TABLET SR 24 HR VIA ORAL ROUTE BY MOUTH EVERY DAY
     Route: 048
  6. PRILOSEC [Concomitant]
     Active Substance: OMEPRAZOLE MAGNESIUM
     Indication: Product used for unknown indication
     Dosage: DELAYED RELEASE CAPSULE
     Route: 048
  7. XARELTO [Concomitant]
     Active Substance: RIVAROXABAN
     Indication: Atrial fibrillation
     Route: 048

REACTIONS (9)
  - Pneumonia [Fatal]
  - Prostate cancer metastatic [Fatal]
  - Encephalopathy [Not Recovered/Not Resolved]
  - Condition aggravated [Not Recovered/Not Resolved]
  - Acute respiratory failure [Fatal]
  - Hypotension [Not Recovered/Not Resolved]
  - Sepsis [Not Recovered/Not Resolved]
  - Bundle branch block right [Unknown]
  - Right ventricular hypertrophy [Recovered/Resolved]

NARRATIVE: CASE EVENT DATE: 20250309
